FAERS Safety Report 7498947-5 (Version None)
Quarter: 2011Q2

REPORT INFORMATION
  Report Type: 
  Country: None (occurrence: None)
  Receive Date: 20110516
  Receipt Date: 20110504
  Transmission Date: 20111010
  Serious: Yes (Hospitalization, Other)
  Sender: FDA-Public Use
  Company Number: 908592

PATIENT
  Age: 68 Year
  Sex: Female

DRUGS (3)
  1. DEXAMETHASONE [Suspect]
     Indication: MORTON'S NEUROMA
     Dosage: 4 MG INJECTION
     Dates: start: 20101005, end: 20101005
  2. LIDOCAINE [Suspect]
     Indication: MORTON'S NEUROMA
     Dosage: INJECTION
     Dates: start: 20101005, end: 20101005
  3. BUPIVACAINE HYDROCHLORIDE [Suspect]
     Indication: MORTON'S NEUROMA
     Dosage: INJECTION
     Dates: start: 20101005, end: 20101005

REACTIONS (4)
  - INJECTION SITE INFLAMMATION [None]
  - NO THERAPEUTIC RESPONSE [None]
  - INJECTION SITE PAIN [None]
  - DRUG ADMINISTRATION ERROR [None]
